FAERS Safety Report 8226929-4 (Version None)
Quarter: 2012Q1

REPORT INFORMATION
  Report Type: 
  Country: None (occurrence: None)
  Receive Date: 20120322
  Receipt Date: 20120227
  Transmission Date: 20120608
  Serious: No
  Sender: FDA-Public Use
  Company Number: US-MYLANLABS-2012S1004591

PATIENT
  Age: 74 Year
  Sex: Female

DRUGS (1)
  1. CARBIDOPA AND LEVODOPA [Suspect]
     Route: 048

REACTIONS (4)
  - HYPERHIDROSIS [None]
  - VOMITING [None]
  - DRUG INEFFECTIVE [None]
  - TREMOR [None]
